FAERS Safety Report 16199580 (Version 4)
Quarter: 2019Q4

REPORT INFORMATION
  Report Type: Spontaneous
  Country: US (occurrence: US)
  Receive Date: 20190415
  Receipt Date: 20191031
  Transmission Date: 20200122
  Serious: Yes (Other)
  Sender: FDA-Public Use
  Company Number: US-CORCEPT THERAPEUTICS INC.-US-2018CRT001429

PATIENT
  Age: 54 Year
  Sex: Female
  Weight: 72.56 kg

DRUGS (5)
  1. KORLYM [Suspect]
     Active Substance: MIFEPRISTONE
     Dosage: UNK
     Dates: start: 2019
  2. LEVOTHYROXINE. [Concomitant]
     Active Substance: LEVOTHYROXINE
     Indication: PRODUCT USED FOR UNKNOWN INDICATION
     Dosage: UNK
  3. SPIRONOLACTONE. [Concomitant]
     Active Substance: SPIRONOLACTONE
     Indication: PRODUCT USED FOR UNKNOWN INDICATION
     Dosage: UNK
  4. KORLYM [Suspect]
     Active Substance: MIFEPRISTONE
     Indication: CUSHING^S SYNDROME
     Dosage: 300 MG, QD
     Route: 048
     Dates: start: 20180809, end: 20181025
  5. KORLYM [Suspect]
     Active Substance: MIFEPRISTONE
     Dosage: 450 MG, QD
     Route: 048
     Dates: start: 20181026, end: 2019

REACTIONS (9)
  - Blood potassium decreased [Unknown]
  - Pruritus [Recovered/Resolved]
  - Uterine polyp [Unknown]
  - Eye swelling [Recovered/Resolved]
  - Exophthalmos [Unknown]
  - Psoriasis [Not Recovered/Not Resolved]
  - Incorrect dose administered [Recovered/Resolved]
  - Scratch [Unknown]
  - Endometrial thickening [Unknown]

NARRATIVE: CASE EVENT DATE: 2018
